FAERS Safety Report 24392772 (Version 1)
Quarter: 2024Q4

REPORT INFORMATION
  Report Type: Spontaneous
  Country: HU (occurrence: HU)
  Receive Date: 20241003
  Receipt Date: 20241003
  Transmission Date: 20250114
  Serious: Yes (Death)
  Sender: TEVA
  Company Number: None

PATIENT
  Age: 65 Year
  Sex: Male
  Weight: 63.2 kg

DRUGS (7)
  1. PACLITAXEL [Suspect]
     Active Substance: PACLITAXEL
     Indication: Lung adenocarcinoma stage III
     Dosage: PACLITAXEL TEVA
     Route: 042
     Dates: start: 20240814, end: 20240814
  2. NEO FERRO FOLGAMMA [Concomitant]
     Indication: Anaemia
     Route: 065
     Dates: start: 20240627
  3. ALFUZOSIN PHARMACENTER [Concomitant]
     Indication: Benign prostatic hyperplasia
     Route: 065
     Dates: start: 20240723
  4. NADROPARIN CALCIUM [Concomitant]
     Active Substance: NADROPARIN CALCIUM
     Indication: Prophylaxis
     Route: 058
     Dates: start: 20240611
  5. AMLODIPINE BESYLATE\PERINDOPRIL ARGININE [Concomitant]
     Active Substance: AMLODIPINE BESYLATE\PERINDOPRIL ARGININE
     Indication: Hypertension
     Dosage: DF: 3.5 MG PERINDOPRIL+2.5 MG AMLODIPINE
     Route: 065
  6. PANTOPRAZOLE [Concomitant]
     Active Substance: PANTOPRAZOLE
     Indication: Abdominal pain upper
     Route: 065
     Dates: start: 20240723
  7. LORDESTIN [Concomitant]
     Indication: Dermatitis allergic
     Route: 065
     Dates: start: 20240804

REACTIONS (5)
  - Tachycardia [Fatal]
  - Respiratory failure [Fatal]
  - Circulatory collapse [Fatal]
  - Dyspnoea [Fatal]
  - Hypotension [Fatal]

NARRATIVE: CASE EVENT DATE: 20240814
